FAERS Safety Report 10336976 (Version 2)
Quarter: 2014Q3

REPORT INFORMATION
  Report Type: Spontaneous
  Country: US (occurrence: US)
  Receive Date: 20140723
  Receipt Date: 20140723
  Transmission Date: 20150326
  Serious: Yes (Hospitalization, Other)
  Sender: FDA-Public Use
  Company Number: US-009507513-2010SP019265

PATIENT
  Sex: Female
  Weight: 104.78 kg

DRUGS (6)
  1. NUVARING [Suspect]
     Active Substance: ETHINYL ESTRADIOL\ETONOGESTREL
     Dosage: UNK
     Dates: start: 2006, end: 200804
  2. VITAMINS (UNSPECIFIED) [Concomitant]
     Active Substance: VITAMINS
     Dosage: USED IN THE 40 DAY PERIOD PRIOR TO THE ONSET OF INJURIES FOR WHICH RECOVERY IS SOUGHT
     Dates: start: 200803
  3. BENADRYL [Concomitant]
     Active Substance: DIPHENHYDRAMINE HYDROCHLORIDE
     Indication: HYPERSENSITIVITY
     Dosage: 1-2 DAILY
     Dates: start: 2001
  4. PRILOSEC [Concomitant]
     Active Substance: OMEPRAZOLE MAGNESIUM
     Indication: GASTROOESOPHAGEAL REFLUX DISEASE
     Dosage: 1 DF, QD
     Dates: start: 1998
  5. DIGESTIVE ENZYMES [Concomitant]
     Active Substance: UNSPECIFIED INGREDIENT
     Dosage: USED IN THE 40 DAY PERIOD PRIOR TO THE ONSET OF THE INJURIES FOR WHICH RECOVERY IS SOUGHT
     Dates: start: 200803
  6. NUVARING [Suspect]
     Active Substance: ETHINYL ESTRADIOL\ETONOGESTREL
     Indication: CONTRACEPTION
     Dosage: UNK
     Route: 067
     Dates: start: 2003, end: 2003

REACTIONS (8)
  - Metrorrhagia [Unknown]
  - Drug prescribing error [Unknown]
  - Arthropathy [Unknown]
  - Menstruation irregular [Unknown]
  - Ovarian cyst [Unknown]
  - Menorrhagia [Recovering/Resolving]
  - Deep vein thrombosis [Recovered/Resolved with Sequelae]
  - Cholecystitis acute [Recovered/Resolved]

NARRATIVE: CASE EVENT DATE: 20061224
